FAERS Safety Report 4441006-6 (Version None)
Quarter: 2004Q3

REPORT INFORMATION
  Report Type: 
  Country: None (occurrence: None)
  Receive Date: 20040901
  Receipt Date: 20040901
  Transmission Date: 20050211
  Serious: Yes (Death)
  Sender: FDA-Public Use
  Company Number: None

PATIENT
  Sex: Male
  Weight: 83.9154 kg

DRUGS (5)
  1. PAXIL CR [Suspect]
     Indication: DEPRESSION
     Dosage: 37.5 MG ONCE DAILY AT BEDTIME
     Dates: start: 20040201, end: 20040818
  2. FLOMAX [Concomitant]
  3. PROVIGIL [Concomitant]
  4. THIOTHIXENE [Concomitant]
  5. AMBIEN [Concomitant]

REACTIONS (5)
  - COMPLETED SUICIDE [None]
  - CONDITION AGGRAVATED [None]
  - DEPRESSION [None]
  - FATIGUE [None]
  - NERVOUSNESS [None]
